FAERS Safety Report 6598037-X (Version None)
Quarter: 2010Q1

REPORT INFORMATION
  Report Type: 
  Country: None (occurrence: None)
  Receive Date: 20100216
  Receipt Date: 20100126
  Transmission Date: 20100710
  Serious: Yes (Hospitalization)
  Sender: FDA-Public Use
  Company Number: BVT-000477

PATIENT
  Sex: Female

DRUGS (2)
  1. KINERET [Suspect]
     Indication: RHEUMATOID ARTHRITIS
     Dosage: 120 MG
     Dates: start: 20030106, end: 20030201
  2. LEFLUNOMIDE [Concomitant]

REACTIONS (3)
  - B-CELL LYMPHOMA [None]
  - CARDIAC FAILURE [None]
  - CARDIOVASCULAR DISORDER [None]
